FAERS Safety Report 7204368-2 (Version None)
Quarter: 2010Q4

REPORT INFORMATION
  Report Type: 
  Country: None (occurrence: None)
  Receive Date: 20101230
  Receipt Date: 20101217
  Transmission Date: 20110411
  Serious: Yes (Other)
  Sender: FDA-Public Use
  Company Number: US-PFIZER INC-2010174882

PATIENT
  Sex: Female
  Weight: 104 kg

DRUGS (3)
  1. PRISTIQ [Suspect]
     Indication: MOOD SWINGS
     Dosage: 50 MG, 1X/DAY
     Route: 048
     Dates: start: 20101001
  2. PRISTIQ [Suspect]
     Indication: DEPRESSION
  3. LEVOTHYROXINE [Concomitant]
     Indication: THYROID DISORDER
     Dosage: UNK

REACTIONS (8)
  - AGGRESSION [None]
  - ANGER [None]
  - ANXIETY [None]
  - BLOOD CHOLESTEROL INCREASED [None]
  - BLOOD TRIGLYCERIDES INCREASED [None]
  - CRYING [None]
  - IRRITABILITY [None]
  - WEIGHT INCREASED [None]
